FAERS Safety Report 19917594 (Version 1)
Quarter: 2021Q4

REPORT INFORMATION
  Report Type: Spontaneous
  Country: US (occurrence: US)
  Receive Date: 20211005
  Receipt Date: 20211005
  Transmission Date: 20220303
  Serious: No
  Sender: FDA-Public Use
  Company Number: US-ELI_LILLY_AND_COMPANY-US202110000337

PATIENT
  Sex: Male

DRUGS (1)
  1. TRULICITY [Suspect]
     Active Substance: DULAGLUTIDE
     Indication: Diabetes mellitus
     Dosage: 0.75 MG, OTHER (EVERY FRIDAY)
     Route: 058
     Dates: start: 202106

REACTIONS (5)
  - Bowel movement irregularity [Unknown]
  - Abdominal distension [Unknown]
  - Diarrhoea [Unknown]
  - Decreased appetite [Unknown]
  - Abdominal discomfort [Unknown]
